FAERS Safety Report 8252154-7 (Version None)
Quarter: 2012Q2

REPORT INFORMATION
  Report Type: 
  Country: None (occurrence: None)
  Receive Date: 20120402
  Receipt Date: 20110419
  Transmission Date: 20120825
  Serious: No
  Sender: FDA-Public Use
  Company Number: US-ABBOTT-11P-163-0804467-00

PATIENT
  Age: 59 Year
  Sex: Male
  Weight: 84.09 kg

DRUGS (6)
  1. OXYCODONE HYDROCHLORIDE [Concomitant]
     Indication: PAIN
     Dosage: DAILY DOSE: 160 MILLIGRAM(S)
     Route: 065
     Dates: end: 20110101
  2. OXYMORPHONE [Concomitant]
     Indication: PAIN
     Dosage: DAILY DOSE: 10 MILLIGRAM(S)
     Route: 065
     Dates: end: 20110101
  3. TESTOSTERONE [Suspect]
     Indication: BLOOD TESTOSTERONE DECREASED
     Dosage: DAILY DOSE: 6.25 GRAM(S), 5 PUMPS PER DAY
     Route: 062
     Dates: start: 20101001
  4. BUPRENORPHINE HYDROCHLORIDE [Concomitant]
     Indication: PROPHYLAXIS
     Dosage: DAILY DOSE:  UNKNOWN
     Route: 065
     Dates: start: 20110401, end: 20110408
  5. BUPROPION HYDROCHLORIDE [Concomitant]
     Indication: DEPRESSION
     Dosage: DAILY DOSE: 400 MILLIGRAM(S)
     Route: 065
  6. SERTRALINE HYDROCHLORIDE [Concomitant]
     Indication: DEPRESSION
     Dosage: DAILY DOSE: 200 MILLIGRAM(S)
     Route: 065

REACTIONS (4)
  - MEDICATION ERROR [None]
  - DEPRESSION [None]
  - ASTHENIA [None]
  - HAIR GROWTH ABNORMAL [None]
